FAERS Safety Report 18603973 (Version 3)
Quarter: 2021Q1

REPORT INFORMATION
  Report Type: Spontaneous
  Country: US (occurrence: US)
  Receive Date: 20201211
  Receipt Date: 20210305
  Transmission Date: 20210419
  Serious: Yes (Other)
  Sender: FDA-Public Use
  Company Number: US-BIOVITRUM-2020US7229

PATIENT
  Sex: Male
  Weight: 12 kg

DRUGS (4)
  1. SYNAGIS [Suspect]
     Active Substance: PALIVIZUMAB
     Indication: PULMONARY ARTERY ATRESIA
  2. SYNAGIS [Suspect]
     Active Substance: PALIVIZUMAB
     Indication: HYPOPLASTIC RIGHT HEART SYNDROME
  3. SYNAGIS [Suspect]
     Active Substance: PALIVIZUMAB
     Indication: PERSISTENT FOETAL CIRCULATION
  4. SYNAGIS [Suspect]
     Active Substance: PALIVIZUMAB
     Indication: VASCULAR MALFORMATION
     Route: 030

REACTIONS (3)
  - Respiratory tract infection [Unknown]
  - Illness [Unknown]
  - Weight decreased [Unknown]
